FAERS Safety Report 4891208-X (Version None)
Quarter: 2006Q1

REPORT INFORMATION
  Report Type: 
  Country: None (occurrence: None)
  Receive Date: 20060125
  Receipt Date: 20051201
  Transmission Date: 20060701
  Serious: Yes (Hospitalization)
  Sender: FDA-Public Use
  Company Number: FRASAN04141

PATIENT
  Age: 41 Year
  Sex: Female

DRUGS (1)
  1. AMOXICILLINE + AC CLAVULANIQUE [Suspect]
     Indication: SINUSITIS
     Route: 048
     Dates: start: 20041014, end: 20041014

REACTIONS (2)
  - HYPOTENSION [None]
  - RASH [None]
